FAERS Safety Report 5106866-4 (Version None)
Quarter: 2006Q3

REPORT INFORMATION
  Report Type: 
  Country: None (occurrence: None)
  Receive Date: 20060913
  Receipt Date: 20060818
  Transmission Date: 20061208
  Serious: Yes (Other)
  Sender: FDA-Public Use
  Company Number: 2006RR-03609

PATIENT
  Age: 7 Day
  Sex: Female

DRUGS (2)
  1. MIDAZOLAM HYDROCHLORIDE [Suspect]
     Indication: SEDATION
  2. FENTANYL [Suspect]

REACTIONS (4)
  - CARDIAC TAMPONADE [None]
  - DYSKINESIA [None]
  - MYOCLONUS [None]
  - SHOCK [None]
